FAERS Safety Report 22203474 (Version 1)
Quarter: 2023Q2

REPORT INFORMATION
  Report Type: Spontaneous
  Country: US (occurrence: None)
  Receive Date: 20230412
  Receipt Date: 20230412
  Transmission Date: 20230721
  Serious: No
  Sender: FDA-Public Use
  Company Number: None

PATIENT
  Age: 81 Year
  Sex: Male

DRUGS (9)
  1. ABIRATERONE [Suspect]
     Active Substance: ABIRATERONE
     Dosage: 1000 MG DAILY ORAL
     Route: 048
     Dates: start: 20230322, end: 20230410
  2. PREDNISONE [Concomitant]
     Active Substance: PREDNISONE
  3. OMEPRAZOLE [Concomitant]
     Active Substance: OMEPRAZOLE
  4. CELECOXIB [Concomitant]
     Active Substance: CELECOXIB
  5. PRAVASTATIN [Concomitant]
     Active Substance: PRAVASTATIN
  6. PROLIA [Concomitant]
     Active Substance: DENOSUMAB
  7. LUPRON [Concomitant]
     Active Substance: LEUPROLIDE ACETATE
  8. FISH OIL [Concomitant]
     Active Substance: FISH OIL
  9. calcium/vit D [Concomitant]

REACTIONS (5)
  - Neuropathy peripheral [None]
  - Peripheral swelling [None]
  - Peripheral swelling [None]
  - Gait disturbance [None]
  - Glycosylated haemoglobin decreased [None]
